FAERS Safety Report 9351258 (Version 1)
Quarter: 2013Q2

REPORT INFORMATION
  Report Type: Spontaneous
  Country: CN (occurrence: CN)
  Receive Date: 20130617
  Receipt Date: 20130617
  Transmission Date: 20140414
  Serious: Yes (Hospitalization)
  Sender: FDA-Public Use
  Company Number: PHHY2013CN059240

PATIENT
  Age: 59 Year
  Sex: Male

DRUGS (3)
  1. ATORVASTATIN [Suspect]
     Indication: MYOCARDIAL ISCHAEMIA
     Dosage: 20 MG, PER DAY
  2. ATORVASTATIN [Suspect]
     Indication: CEREBROVASCULAR DISORDER
  3. ATORVASTATIN [Suspect]
     Indication: HYPERLIPIDAEMIA

REACTIONS (4)
  - Convulsion [Unknown]
  - Loss of consciousness [Unknown]
  - Rhabdomyolysis [Unknown]
  - Chromaturia [Unknown]
